FAERS Safety Report 18330316 (Version 12)
Quarter: 2022Q1

REPORT INFORMATION
  Report Type: Report from Study
  Country: CN (occurrence: None)
  Receive Date: 20200930
  Receipt Date: 20220228
  Transmission Date: 20220423
  Serious: Yes (Hospitalization)
  Sender: FDA-Public Use
  Company Number: CN-ROCHE-2682262

PATIENT
  Age: 58 Year
  Sex: Male
  Weight: 54.5 kg

DRUGS (26)
  1. PLACEBO [Suspect]
     Active Substance: UNSPECIFIED INGREDIENT
     Indication: Diffuse large B-cell lymphoma
     Dosage: ON 16/SEP/2020, HE RECEIVED THE MOST RECENT DOSE OF BLINDED POLATUZUMAB VEDOTIN.
     Route: 042
     Dates: start: 20200827
  2. RITUXIMAB [Suspect]
     Active Substance: RITUXIMAB
     Indication: Diffuse large B-cell lymphoma
     Dosage: ON 16/SEP/2020, HE RECEIVED THE MOST RECENT DOSE OF RITUXIMAB (618.75 MG)
     Route: 041
     Dates: start: 20200826
  3. BENDAMUSTINE [Suspect]
     Active Substance: BENDAMUSTINE
     Indication: Diffuse large B-cell lymphoma
     Dosage: ON 17/SEP/2020, HE RECEIVED THE MOST RECENT DOSE OF BENDAMUSTINE (148.50 MG)
     Route: 042
     Dates: start: 20200827
  4. IMMUNE GLOBULIN NOS [Concomitant]
     Active Substance: IMMUNE GLOBULIN NOS
     Dates: start: 20200828, end: 20200828
  5. IMMUNE GLOBULIN NOS [Concomitant]
     Active Substance: IMMUNE GLOBULIN NOS
     Dates: start: 20200917, end: 20200917
  6. COTRIMOXAZOLE [Concomitant]
     Active Substance: SULFAMETHOXAZOLE\TRIMETHOPRIM
     Dates: start: 20200825
  7. CELECOXIB [Concomitant]
     Active Substance: CELECOXIB
     Dates: start: 20200826, end: 20200827
  8. CELECOXIB [Concomitant]
     Active Substance: CELECOXIB
     Dates: start: 20200916, end: 20200916
  9. CIMETIDINE [Concomitant]
     Active Substance: CIMETIDINE
     Dates: start: 20200826, end: 20200827
  10. CIMETIDINE [Concomitant]
     Active Substance: CIMETIDINE
     Dates: start: 20200916, end: 20200916
  11. DEXAMETHASONE [Concomitant]
     Active Substance: DEXAMETHASONE
     Route: 042
     Dates: start: 20200826, end: 20200827
  12. DEXAMETHASONE [Concomitant]
     Active Substance: DEXAMETHASONE
     Route: 042
     Dates: start: 20200916, end: 20200916
  13. DIPHENHYDRAMINE [Concomitant]
     Active Substance: DIPHENHYDRAMINE
     Dates: start: 20200826, end: 20200827
  14. DIPHENHYDRAMINE [Concomitant]
     Active Substance: DIPHENHYDRAMINE
     Dates: start: 20200916, end: 20200916
  15. PALONOSETRON [Concomitant]
     Active Substance: PALONOSETRON
     Dates: start: 20200827, end: 20200828
  16. PALONOSETRON [Concomitant]
     Active Substance: PALONOSETRON
     Dates: start: 20200916, end: 20200917
  17. FEBUXOSTAT [Concomitant]
     Active Substance: FEBUXOSTAT
     Indication: Hyperuricaemia
     Dates: start: 20200825
  18. ACETAMINOPHEN [Concomitant]
     Active Substance: ACETAMINOPHEN
     Indication: Neck pain
     Dates: start: 20200825, end: 20200829
  19. ACETAMINOPHEN [Concomitant]
     Active Substance: ACETAMINOPHEN
     Dates: start: 20200915
  20. HEPARIN [Concomitant]
     Active Substance: HEPARIN SODIUM
     Dates: start: 20200826, end: 20200826
  21. MEDROXYPROGESTERONE [Concomitant]
     Active Substance: MEDROXYPROGESTERONE
     Indication: Decreased appetite
     Dates: start: 20200901
  22. METOCLOPRAMIDE [Concomitant]
     Active Substance: METOCLOPRAMIDE
     Indication: Nausea
     Dates: start: 20200901, end: 20200907
  23. LORATADINE [Concomitant]
     Active Substance: LORATADINE
     Dates: start: 20200909, end: 20200912
  24. OLANZAPINE [Concomitant]
     Active Substance: OLANZAPINE
     Indication: Nausea
     Dates: start: 20200916, end: 20200916
  25. IRBESARTAN [Concomitant]
     Active Substance: IRBESARTAN
     Indication: Hypertension
  26. AMLODIPINE BESYLATE [Concomitant]
     Active Substance: AMLODIPINE BESYLATE
     Indication: Hypertension

REACTIONS (1)
  - Upper gastrointestinal haemorrhage [Not Recovered/Not Resolved]

NARRATIVE: CASE EVENT DATE: 20200918
